FAERS Safety Report 16237714 (Version 1)
Quarter: 2019Q2

REPORT INFORMATION
  Report Type: Spontaneous
  Country: US (occurrence: US)
  Receive Date: 20190424
  Receipt Date: 20190424
  Transmission Date: 20190711
  Serious: Yes (Other)
  Sender: FDA-Public Use
  Company Number: None

PATIENT
  Sex: Female
  Weight: 52.16 kg

DRUGS (21)
  1. VITAMIN C [Concomitant]
     Active Substance: ASCORBIC ACID
  2. MELATONIN [Concomitant]
     Active Substance: MELATONIN
  3. ELIQUIS [Concomitant]
     Active Substance: APIXABAN
  4. FASLODEX [Concomitant]
     Active Substance: FULVESTRANT
  5. ALPHA LIPOIC ACID [Concomitant]
     Active Substance: .ALPHA.-LIPOIC ACID
  6. XGEVA [Concomitant]
     Active Substance: DENOSUMAB
  7. LETROZOLE. [Concomitant]
     Active Substance: LETROZOLE
  8. MAGNESIUM [Concomitant]
     Active Substance: MAGNESIUM
  9. VITAMIN D NOS [Concomitant]
     Active Substance: VITAMIN D NOS
  10. CAPECITABINE. [Suspect]
     Active Substance: CAPECITABINE
     Indication: BREAST CANCER
     Dosage: 1000 MG BID 2WK ON 1WK OFF; ORAL?
     Route: 048
     Dates: start: 20190306, end: 20190424
  11. LEVOTHYROXINE. [Concomitant]
     Active Substance: LEVOTHYROXINE
  12. NOVOLOG [Concomitant]
     Active Substance: INSULIN ASPART
  13. NOVOLIN N [Concomitant]
     Active Substance: INSULIN HUMAN
  14. CLINDAMYCIN PHOSPHATE. [Concomitant]
     Active Substance: CLINDAMYCIN PHOSPHATE
  15. SIMVASTATIN. [Concomitant]
     Active Substance: SIMVASTATIN
  16. EZETIMIBE. [Concomitant]
     Active Substance: EZETIMIBE
  17. CALCIUM [Concomitant]
     Active Substance: CALCIUM
  18. TYKERB [Suspect]
     Active Substance: LAPATINIB DITOSYLATE
     Indication: BREAST CANCER
     Route: 048
     Dates: start: 20190314, end: 20190424
  19. PERJETA [Concomitant]
     Active Substance: PERTUZUMAB
  20. AMIODARONE [Concomitant]
     Active Substance: AMIODARONE
  21. FERROUS SULFATE. [Concomitant]
     Active Substance: FERROUS SULFATE

REACTIONS (1)
  - Diarrhoea [None]
